APPROVED DRUG PRODUCT: RISPERDAL CONSTA
Active Ingredient: RISPERIDONE
Strength: 50MG/VIAL
Dosage Form/Route: POWDER;INTRAMUSCULAR
Application: N021346 | Product #003 | TE Code: AB
Applicant: JANSSEN PHARMACEUTICALS INC
Approved: Oct 29, 2003 | RLD: Yes | RS: Yes | Type: RX